FAERS Safety Report 5557348-7 (Version None)
Quarter: 2007Q4

REPORT INFORMATION
  Report Type: 
  Country: None (occurrence: None)
  Receive Date: 20071211
  Receipt Date: 20071203
  Transmission Date: 20080405
  Serious: Yes (Death)
  Sender: FDA-Public Use
  Company Number: CHNY2007GB03938

PATIENT
  Age: 65 Year
  Sex: Female
  Weight: 75 kg

DRUGS (11)
  1. IBUPROFEN (NCH) (IBUPROFEN) UNKNOWN [Suspect]
     Dosage: 1200 MG, ORAL
     Route: 048
     Dates: end: 20071023
  2. ACETYLSALICYLIC ACID (NGX) (ACETYLSALICYLIC ACID) TABLET [Suspect]
     Dosage: 75 MG, ORAL
     Route: 048
     Dates: start: 20060323
  3. CHLORPROMAZINE [Concomitant]
  4. CODEINE PHOSPHATE AND ACETAMINOPHEN [Concomitant]
  5. DIAZEPAM [Concomitant]
  6. DOSULEPIN (DOSULEPIN) [Concomitant]
  7. FLUPHENAZINE DECANOATE [Concomitant]
  8. LANSOPRAZOLE [Concomitant]
  9. LEVOTHYROXINE SODIUM [Concomitant]
  10. PROCYCLIDINE HYDROCHLORIDE 2MG TAB [Concomitant]
  11. QUININE (QUININE) [Concomitant]

REACTIONS (2)
  - GASTROINTESTINAL HAEMORRHAGE [None]
  - PERFORATED ULCER [None]
